FAERS Safety Report 5113907-7 (Version None)
Quarter: 2006Q3

REPORT INFORMATION
  Report Type: 
  Country: None (occurrence: None)
  Receive Date: 20060922
  Receipt Date: 20060922
  Transmission Date: 20061208
  Serious: Yes (Hospitalization)
  Sender: FDA-Public Use
  Company Number: None

PATIENT
  Age: 28 Year
  Sex: Female
  Weight: 48.0813 kg

DRUGS (7)
  1. REMODULIN [Suspect]
     Indication: PULMONARY HYPERTENSION
     Dosage: 84NG/KG/MIN IV 39CC/24HR
     Route: 042
  2. COUMADIN [Concomitant]
  3. PREDNISONE [Concomitant]
  4. PLAQUENEL [Concomitant]
  5. SKELAXIN [Concomitant]
  6. LASIX [Concomitant]
  7. DIGOXIN [Concomitant]

REACTIONS (3)
  - CATHETER RELATED INFECTION [None]
  - PATHOGEN RESISTANCE [None]
  - PSEUDOMONAS INFECTION [None]
